FAERS Safety Report 13896293 (Version 1)
Quarter: 2017Q3

REPORT INFORMATION
  Report Type: Spontaneous
  Country: US (occurrence: US)
  Receive Date: 20170823
  Receipt Date: 20170823
  Transmission Date: 20171127
  Serious: Yes (Other)
  Sender: FDA-Public Use
  Company Number: US-MYLANLABS-2017060012

PATIENT

DRUGS (3)
  1. FELBAMATE MYLAN [Suspect]
     Active Substance: FELBAMATE
     Indication: JUVENILE MYOCLONIC EPILEPSY
     Dosage: 3 TABLETS IN AM AND 2 TABLETS IN PM
     Route: 048
     Dates: start: 2010, end: 20170526
  2. ZONISAMIDE. [Concomitant]
     Active Substance: ZONISAMIDE
     Indication: SEIZURE
     Dosage: UNK, QID
  3. FELBAMATE MYLAN [Suspect]
     Active Substance: FELBAMATE
     Dosage: 1200 MG,TID (6 TABLETS)
     Route: 048
     Dates: start: 20170601

REACTIONS (3)
  - Seizure [Recovered/Resolved]
  - Product quality issue [Unknown]
  - Generalised tonic-clonic seizure [Recovered/Resolved]

NARRATIVE: CASE EVENT DATE: 20170526
